FAERS Safety Report 8163679-7 (Version None)
Quarter: 2012Q1

REPORT INFORMATION
  Report Type: 
  Country: None (occurrence: None)
  Receive Date: 20120224
  Receipt Date: 20120217
  Transmission Date: 20120608
  Serious: Yes (Other)
  Sender: FDA-Public Use
  Company Number: CA-JNJFOC-20120210080

PATIENT

DRUGS (2)
  1. CELEBREX [Concomitant]
  2. SIMPONI [Suspect]
     Indication: ANKYLOSING SPONDYLITIS
     Route: 058
     Dates: start: 20060501

REACTIONS (2)
  - REFLUX NEPHROPATHY [None]
  - NEPHROLITHIASIS [None]
